FAERS Safety Report 5967512-0 (Version None)
Quarter: 2008Q4

REPORT INFORMATION
  Report Type: 
  Country: None (occurrence: None)
  Receive Date: 20081125
  Receipt Date: 20081118
  Transmission Date: 20090506
  Serious: Yes (Other)
  Sender: FDA-Public Use
  Company Number: US-PFIZER INC-2008072002

PATIENT
  Sex: Female
  Weight: 47.6 kg

DRUGS (2)
  1. XALATAN [Suspect]
     Indication: NORMAL TENSION GLAUCOMA
     Route: 047
     Dates: start: 20010101
  2. LUMIGAN [Suspect]
     Indication: NORMAL TENSION GLAUCOMA

REACTIONS (4)
  - INTRAOCULAR PRESSURE INCREASED [None]
  - MALIGNANT MELANOMA [None]
  - OCULAR HYPERAEMIA [None]
  - PARKINSON'S DISEASE [None]
